FAERS Safety Report 5590842-1 (Version None)
Quarter: 2008Q1

REPORT INFORMATION
  Report Type: 
  Country: None (occurrence: None)
  Receive Date: 20080110
  Receipt Date: 20071226
  Transmission Date: 20080703
  Serious: Yes (Other)
  Sender: FDA-Public Use
  Company Number: DSJ-2007-09135

PATIENT
  Age: 40 Year
  Sex: Male
  Weight: 99 kg

DRUGS (5)
  1. OLMESARTAN MEDOXOMIL [Suspect]
     Indication: HYPERTENSION
     Dosage: 20 MG (1 IN 1 D) , PER ORAL
     Route: 048
     Dates: start: 20061011
  2. DOXAZOSIN MESYLATE [Suspect]
     Indication: HYPERTENSION
     Dosage: 2 MG (1 IN 1 D) , PER ORAL
     Route: 048
     Dates: start: 20070214, end: 20070926
  3. CALBLOCK (AZELNIDIPINE) (TABLET) (AZELNIDIPINE) [Concomitant]
  4. AMLODIN (AMLODIPINE BESILATE) (TABLET) (AMLODIPINE BESILATE) [Concomitant]
  5. NU-LOTAN (LOSARTAN POTASSIUM) (TABLET) (LOSARTAN POTASSIUM) [Concomitant]

REACTIONS (4)
  - ANXIETY [None]
  - BLOOD PRESSURE INADEQUATELY CONTROLLED [None]
  - ERECTILE DYSFUNCTION [None]
  - NO THERAPEUTIC RESPONSE [None]
